FAERS Safety Report 4826045-5 (Version None)
Quarter: 2005Q4

REPORT INFORMATION
  Report Type: 
  Country: None (occurrence: None)
  Receive Date: 20051109
  Receipt Date: 20051031
  Transmission Date: 20060501
  Serious: Yes (Hospitalization)
  Sender: FDA-Public Use
  Company Number: US-2005-022711

PATIENT
  Age: 57 Year
  Sex: Female
  Weight: 91 kg

DRUGS (9)
  1. BETASERON [Suspect]
     Indication: RELAPSING-REMITTING MULTIPLE SCLEROSIS
     Dosage: 8 MIU, EVERY 2D, SUBCUTANEOUS
     Route: 058
     Dates: start: 19940101, end: 20041015
  2. PLENDIL [Concomitant]
  3. ALTACE [Concomitant]
  4. TOPROL-XL [Concomitant]
  5. ACTOS /USA/ (PIOGLITAZONE HYDROCHLORIDE) [Concomitant]
  6. AMARYL [Concomitant]
  7. LIPITOR /NET/ (ATORVASTATIN CALCIUM) [Concomitant]
  8. WELLBUTRIN [Concomitant]
  9. ZOLOFT [Concomitant]

REACTIONS (1)
  - THROMBOCYTOPENIC PURPURA [None]
